FAERS Safety Report 7972566 (Version 5)
Quarter: 2013Q1

REPORT INFORMATION
  Report Type: Report from Study
  Country: JP (occurrence: JP)
  Receive Date: 20110603
  Receipt Date: 20130313
  Transmission Date: 20140127
  Serious: Yes (Hospitalization, Other)
  Sender: FDA-Public Use
  Company Number: JP-BAYER-201014759BYL

PATIENT
  Age: 69 Year
  Sex: Male
  Weight: 69 kg

DRUGS (27)
  1. NEXAVAR [Suspect]
     Indication: HEPATOCELLULAR CARCINOMA
     Dosage: 400 MG (DAILY DOSE), , ORAL
     Route: 048
     Dates: start: 20100722, end: 20100805
  2. NEXAVAR [Suspect]
     Indication: HEPATOCELLULAR CARCINOMA
     Dosage: 400 MG (DAILY DOSE), , ORAL
     Route: 048
     Dates: start: 20100817, end: 20101025
  3. UREPEARL [Concomitant]
     Route: 061
     Dates: start: 20100722
  4. RINDERON-VG [Concomitant]
     Route: 061
     Dates: start: 20100722
  5. LACTULOSE [Concomitant]
     Dosage: 60 ML (DAILY DOSE), , ORAL
     Route: 048
     Dates: start: 20100523
  6. PORTOLAC [Concomitant]
     Dosage: 18 G (DAILY DOSE), , ORAL
     Route: 048
     Dates: start: 20100415
  7. AMINOLEBAN EN [Concomitant]
     Dosage: 50 G (DAILY DOSE), , ORAL
     Route: 048
     Dates: start: 20100416
  8. LIVACT [Concomitant]
     Dosage: 12.45 G (DAILY DOSE), , ORAL
     Route: 048
     Dates: start: 20090519
  9. MACMET [Concomitant]
     Dosage: 3.6 G (DAILY DOSE), , ORAL
     Route: 048
     Dates: start: 20100207
  10. NORVASC [Concomitant]
     Dosage: 5 MG, QD
     Route: 048
     Dates: start: 20100722, end: 20100804
  11. LANSOPRAZOLE [Concomitant]
     Dosage: 30 MG (DAILY DOSE), , ORAL
     Route: 048
     Dates: start: 20100612
  12. TENORMIN [Concomitant]
     Dosage: 25 MG (DAILY DOSE), , ORAL
     Route: 048
     Dates: start: 20100407
  13. URSO [Concomitant]
     Dosage: 300 MG (DAILY DOSE), , ORAL
     Route: 048
     Dates: start: 20100416
  14. LASIX [Concomitant]
     Dosage: 40 MG (DAILY DOSE), , ORAL
     Route: 048
     Dates: start: 20100609
  15. MACACY A [Concomitant]
     Dosage: 50 MG (DAILY DOSE), , ORAL
     Route: 048
     Dates: start: 20100410
  16. PROMAC [POLAPREZINC] [Concomitant]
     Dosage: 150 MG (DAILY DOSE), , ORAL
     Route: 048
     Dates: start: 20100207
  17. PURSENNID [Concomitant]
     Dosage: 24 MG (DAILY DOSE), , ORAL
     Route: 048
     Dates: start: 20100416
  18. AMLODIN [Concomitant]
     Dosage: 5 MG (DAILY DOSE), , ORAL
     Route: 048
     Dates: start: 20100805
  19. LAXOBERON [Concomitant]
     Dosage: 1.42 ML (DAILY DOSE), , ORAL
     Route: 048
     Dates: start: 20100618, end: 20100901
  20. MUCOSTA [Concomitant]
     Dosage: 300 MG (DAILY DOSE), , ORAL
     Route: 048
     Dates: start: 20100806
  21. SODIUM ALGINATE [Concomitant]
     Dosage: 12.8 ML (DAILY DOSE), , ORAL
     Route: 048
     Dates: start: 20100806
  22. PARIET [Concomitant]
     Dosage: 20 MG (DAILY DOSE), , ORAL
     Route: 048
     Dates: start: 20100907
  23. ADALAT CR [Concomitant]
     Dosage: 20 MG (DAILY DOSE), , ORAL
     Route: 048
     Dates: start: 20100916
  24. NAUZELIN [Concomitant]
     Dosage: 10 MG (DAILY DOSE), , ORAL
     Route: 048
     Dates: start: 20100916
  25. LORFENAMIN [Concomitant]
     Dosage: 60 MG (DAILY DOSE), , ORAL
     Route: 048
     Dates: start: 20100916
  26. INDERAL LA [Concomitant]
     Dosage: 60 MG, QD
     Route: 048
     Dates: start: 20101102
  27. MAGLAX [Concomitant]
     Dosage: DAILY DOSE 990 MG
     Route: 048
     Dates: start: 20101110

REACTIONS (16)
  - Haemoglobin decreased [Recovered/Resolved]
  - Haemoglobin decreased [Recovered/Resolved]
  - Oedema peripheral [Not Recovered/Not Resolved]
  - Hepatic encephalopathy [Recovered/Resolved]
  - Decreased appetite [Recovered/Resolved]
  - Nausea [Recovered/Resolved]
  - Fatigue [Not Recovered/Not Resolved]
  - Stomatitis [Recovered/Resolved]
  - Pruritus [Recovered/Resolved]
  - Rash [Recovered/Resolved]
  - Diarrhoea [Recovered/Resolved]
  - Hypertension [Recovered/Resolved]
  - Stomatitis [Recovered/Resolved]
  - Face oedema [Recovered/Resolved]
  - Ascites [Recovered/Resolved]
  - Palmar-plantar erythrodysaesthesia syndrome [Recovering/Resolving]
